FAERS Safety Report 18052298 (Version 2)
Quarter: 2020Q3

REPORT INFORMATION
  Report Type: Report from Study
  Country: CZ (occurrence: CZ)
  Receive Date: 20200722
  Receipt Date: 20200818
  Transmission Date: 20201103
  Serious: Yes (Other)
  Sender: FDA-Public Use
  Company Number: CZ-UCBSA-2020028350

PATIENT
  Age: 22 Year
  Sex: Female

DRUGS (1)
  1. CERTOLIZUMAB PEGOL [Suspect]
     Active Substance: CERTOLIZUMAB PEGOL
     Indication: PSORIATIC ARTHROPATHY
     Dosage: 200 MILLIGRAM, EV 2 WEEKS(QOW)
     Route: 058
     Dates: start: 20200221, end: 20200629

REACTIONS (3)
  - Rhinitis [Recovering/Resolving]
  - Eye infection staphylococcal [Recovering/Resolving]
  - Ear infection staphylococcal [Recovering/Resolving]

NARRATIVE: CASE EVENT DATE: 20200703
